FAERS Safety Report 5467725-0 (Version None)
Quarter: 2007Q3

REPORT INFORMATION
  Report Type: 
  Country: None (occurrence: None)
  Receive Date: 20070814
  Receipt Date: 20070529
  Transmission Date: 20080115
  Serious: Yes (Other)
  Sender: FDA-Public Use
  Company Number: 200714011US

PATIENT
  Age: 66 Year
  Sex: Male

DRUGS (3)
  1. INSULIN GLULISINE (APIDRA) SOLUTION FOR INFUSION [Suspect]
     Indication: TYPE 1 DIABETES MELLITUS
  2. LATANOPROST (XALATAN) [Concomitant]
  3. DUTASTERIDE (AVODART) [Concomitant]

REACTIONS (2)
  - HYPERGLYCAEMIA [None]
  - HYPOGLYCAEMIC UNCONSCIOUSNESS [None]
